FAERS Safety Report 6251825-1 (Version None)
Quarter: 2009Q2

REPORT INFORMATION
  Report Type: 
  Country: None (occurrence: None)
  Receive Date: 20090630
  Receipt Date: 20090623
  Transmission Date: 20091009
  Serious: Yes (Hospitalization)
  Sender: FDA-Public Use
  Company Number: JP-AVENTIS-200911760JP

PATIENT
  Age: 79 Year
  Sex: Female

DRUGS (1)
  1. ENOXAPARIN SODIUM [Suspect]
     Indication: OSTEOSYNTHESIS
     Route: 058
     Dates: start: 20090611, end: 20090620

REACTIONS (1)
  - POSTOPERATIVE WOUND INFECTION [None]
